FAERS Safety Report 9776124 (Version 1)
Quarter: 2013Q4

REPORT INFORMATION
  Report Type: Spontaneous
  Country: FR (occurrence: None)
  Receive Date: 20131218
  Receipt Date: 20131218
  Transmission Date: 20140711
  Serious: Yes (Hospitalization)
  Sender: FDA-Public Use
  Company Number: 2013CP000161

PATIENT
  Age: 75 Year
  Sex: Female

DRUGS (7)
  1. PERFALGAN (PARACETAMOL) [Suspect]
     Dosage: ; IV
     Route: 042
  2. DAFALGAN [Suspect]
     Indication: ANALGESIC THERAPY
     Dosage: 500 MG ; 4/ 1 DAY ;
     Dates: start: 20131004, end: 20131004
  3. PROFENID (KETOPROFEN) [Suspect]
     Dosage: ; BID ; ORAL
     Route: 048
     Dates: start: 20131004, end: 20131005
  4. PANTOPRAZOLE (PANTOPRAZOLE) [Suspect]
     Indication: ANALGESIC THERAPY
     Route: 048
     Dates: start: 20131004
  5. THIOCOLCHICOSIDE [Suspect]
     Indication: MUSCLE CONTRACTURE
     Route: 048
     Dates: start: 20131004
  6. ALPRAZOLAM (ALPRAZOLAM) [Suspect]
     Indication: ANXIETY
     Dosage: .25 MG; 1 DAY
     Dates: start: 20131004
  7. LOVENOX (ENOXAPARIN SODIUM) [Suspect]

REACTIONS (12)
  - Diarrhoea [None]
  - Malaise [None]
  - Abdominal pain [None]
  - Hypotension [None]
  - Bradycardia [None]
  - Abdominal rigidity [None]
  - Hyperhidrosis [None]
  - Nausea [None]
  - General physical health deterioration [None]
  - Dizziness [None]
  - Vomiting [None]
  - Abdominal rigidity [None]
